FAERS Safety Report 5710699-5 (Version None)
Quarter: 2008Q2

REPORT INFORMATION
  Report Type: 
  Country: None (occurrence: None)
  Receive Date: 20080421
  Receipt Date: 20080409
  Transmission Date: 20081010
  Serious: Yes (Death, Other)
  Sender: FDA-Public Use
  Company Number: US-JNJFOC-20080403201

PATIENT
  Sex: Male

DRUGS (3)
  1. TOPAMAX [Suspect]
     Indication: CONVULSION
     Route: 048
  2. KEPPRA [Concomitant]
     Indication: CONVULSION
  3. DEPAKOTE [Concomitant]
     Indication: CONVULSION

REACTIONS (2)
  - CONVULSION [None]
  - DEATH [None]
